FAERS Safety Report 7672021-7 (Version None)
Quarter: 2011Q3

REPORT INFORMATION
  Report Type: 
  Country: None (occurrence: None)
  Receive Date: 20110809
  Receipt Date: 20110725
  Transmission Date: 20111222
  Serious: Yes (Death)
  Sender: FDA-Public Use
  Company Number: NZ-ARROW GEN-2011-11958

PATIENT
  Age: 8 Year

DRUGS (4)
  1. ISOFLURANE [Suspect]
     Indication: MAINTENANCE OF ANAESTHESIA
     Dosage: UNK
  2. PROPOFOL [Suspect]
     Indication: INDUCTION OF ANAESTHESIA
     Dosage: UNK
  3. NITRIC OXIDE [Suspect]
     Indication: MAINTENANCE OF ANAESTHESIA
     Dosage: UNK
  4. FENTANYL [Suspect]
     Indication: INDUCTION OF ANAESTHESIA
     Dosage: UNK

REACTIONS (2)
  - BRADYCARDIA [None]
  - PULSELESS ELECTRICAL ACTIVITY [None]
